FAERS Safety Report 4392294-6 (Version None)
Quarter: 2004Q3

REPORT INFORMATION
  Report Type: 
  Country: None (occurrence: None)
  Receive Date: 20040701
  Receipt Date: 20040621
  Transmission Date: 20050211
  Serious: No
  Sender: FDA-Public Use
  Company Number: 2004UW12899

PATIENT
  Age: 3 Year
  Sex: Male

DRUGS (1)
  1. PRILOSEC [Suspect]
     Indication: GASTROOESOPHAGEAL REFLUX DISEASE
     Dosage: 5 MG TID PO
     Route: 048

REACTIONS (2)
  - DEVELOPMENTAL DELAY [None]
  - SENSORY INTEGRATIVE DYSFUNCTION [None]
